FAERS Safety Report 9248256 (Version 1)
Quarter: 2013Q1

REPORT INFORMATION
  Report Type: Spontaneous
  Country: US (occurrence: None)
  Receive Date: 20130305
  Receipt Date: 20130305
  Transmission Date: 20140127
  Serious: Yes (Other)
  Sender: FDA-Public Use
  Company Number: 163-21880-12092333

PATIENT
  Age: 69 Year
  Sex: Female

DRUGS (4)
  1. REVLIMID (LENALIDOMIDE)(25 MILLIGRAM, CAPSULES) [Suspect]
     Indication: PLASMA CELL MYELOMA
     Dosage: 21 IN 21D
     Route: 048
     Dates: start: 20110204, end: 2011
  2. PREMARIN(ESTROGENS CONJUGATED)(UNKNOWN) [Concomitant]
  3. PRILOSEC [Concomitant]
  4. OMEGA-3(OMEGA-3 TRIGLYCERIDES)(UNKNOWN) [Concomitant]

REACTIONS (1)
  - Swelling face [None]
